FAERS Safety Report 10057538 (Version 3)
Quarter: 2014Q2

REPORT INFORMATION
  Report Type: Spontaneous
  Country: ES (occurrence: ES)
  Receive Date: 20140404
  Receipt Date: 20140529
  Transmission Date: 20141212
  Serious: Yes (Death)
  Sender: FDA-Public Use
  Company Number: ES-ROCHE-1376504

PATIENT
  Age: 50 Year
  Sex: Male
  Weight: 110 kg

DRUGS (5)
  1. ZELBORAF [Suspect]
     Indication: MALIGNANT MELANOMA
     Route: 048
     Dates: start: 20140318, end: 20140322
  2. VEMURAFENIB [Concomitant]
     Route: 065
  3. SERTRALINE [Concomitant]
  4. TRANXILIUM [Concomitant]
  5. ALPRAZOLAM [Concomitant]
     Route: 065

REACTIONS (4)
  - Renal failure [Fatal]
  - Constipation [Fatal]
  - Vomiting [Fatal]
  - Diarrhoea [Fatal]
